FAERS Safety Report 9060652 (Version 2)
Quarter: 2013Q1

REPORT INFORMATION
  Report Type: Spontaneous
  Country: TW (occurrence: TW)
  Receive Date: 20130212
  Receipt Date: 20130221
  Transmission Date: 20140127
  Serious: Yes (Other)
  Sender: FDA-Public Use
  Company Number: TW-RANBAXY-2013RR-64983

PATIENT
  Age: 77 Year
  Sex: Male

DRUGS (9)
  1. PREDNISOLONE [Suspect]
     Indication: ADRENAL INSUFFICIENCY
     Dosage: 10 MG IN THE MORNING AND 5 MG IN THE EVENING
     Route: 065
  2. PREDNISOLONE [Suspect]
     Indication: ADRENAL INSUFFICIENCY
     Dosage: 2.5 MG IN THE MORNING AND 2.5 MG AT NIGHT
     Route: 065
  3. CORTISONE [Suspect]
     Indication: ADRENAL INSUFFICIENCY
     Dosage: 25 MG IN THE MORNING AND 12.5 MG IN THE EVENING
     Route: 065
  4. CORTISONE [Suspect]
     Indication: ADRENAL INSUFFICIENCY
     Dosage: 50 MG IN THE MORNING AND 25 MG IN THE EVENING
     Route: 065
  5. CORTISONE [Suspect]
     Indication: ADRENAL INSUFFICIENCY
     Dosage: 25 MG IN THE MORNING AND 12.5 MG IN THE EVENING
     Route: 065
  6. CORTISONE [Suspect]
     Indication: ADRENAL INSUFFICIENCY
     Dosage: 50 MG IN THE MORNING AND 25 MG IN THE EVENING
     Route: 065
  7. HYDROCORTISONE [Suspect]
     Indication: ADRENOCORTICAL INSUFFICIENCY ACUTE
     Dosage: 100 MG
     Route: 042
  8. THYROXINE [Concomitant]
     Indication: HYPOTHYROIDISM
     Dosage: 50 UG IN THE MORNING
     Route: 065
  9. THYROXINE [Concomitant]
     Indication: HYPOTHYROIDISM
     Dosage: 100 UG IN THE MORNING
     Route: 065

REACTIONS (1)
  - Substance-induced psychotic disorder [Recovered/Resolved]
